FAERS Safety Report 10029286 (Version 2)
Quarter: 2015Q1

REPORT INFORMATION
  Report Type: Spontaneous
  Country: ES (occurrence: ES)
  Receive Date: 20140321
  Receipt Date: 20150217
  Transmission Date: 20150720
  Serious: Yes (Other)
  Sender: FDA-Public Use
  Company Number: PHHY2014ES034139

PATIENT
  Age: 10 Year

DRUGS (3)
  1. METAMIZOLE [Suspect]
     Active Substance: METAMIZOLE
  2. IBUPROFEN. [Suspect]
     Active Substance: IBUPROFEN
  3. ACETYLSALICYLIC ACID [Suspect]
     Active Substance: ASPIRIN

REACTIONS (1)
  - Angioedema [Unknown]
